FAERS Safety Report 16631568 (Version 2)
Quarter: 2019Q3

REPORT INFORMATION
  Report Type: Report from Study
  Country: US (occurrence: US)
  Receive Date: 20190725
  Receipt Date: 20190807
  Transmission Date: 20191004
  Serious: Yes (Other)
  Sender: FDA-Public Use
  Company Number: US-RETROPHIN, INC.-2019RTN00071

PATIENT
  Sex: Female

DRUGS (1)
  1. CHOLIC ACID [Suspect]
     Active Substance: CHOLIC ACID
     Indication: BILIARY TRACT DISORDER
     Dosage: 200 MG, 1X/DAY
     Dates: start: 20150515

REACTIONS (1)
  - Nasal septum deviation [Recovered/Resolved]
